FAERS Safety Report 24141780 (Version 3)
Quarter: 2024Q3

REPORT INFORMATION
  Report Type: Report from Study
  Country: JP (occurrence: JP)
  Receive Date: 20240726
  Receipt Date: 20240816
  Transmission Date: 20241016
  Serious: Yes (Other)
  Sender: MERZ
  Company Number: JP-teijin-202302594_XE_P_1

PATIENT
  Age: 68 Year
  Sex: Female

DRUGS (8)
  1. XEOMIN [Suspect]
     Active Substance: INCOBOTULINUMTOXINA
     Indication: Muscle spasticity
     Route: 030
     Dates: start: 20210916, end: 20210916
  2. XEOMIN [Suspect]
     Active Substance: INCOBOTULINUMTOXINA
     Dosage: 200 025
     Route: 030
     Dates: start: 20220203, end: 20220203
  3. XEOMIN [Suspect]
     Active Substance: INCOBOTULINUMTOXINA
     Dosage: 200 025
     Route: 030
     Dates: start: 20220519, end: 20220519
  4. XEOMIN [Suspect]
     Active Substance: INCOBOTULINUMTOXINA
     Dosage: 200 025
     Dates: start: 20220818, end: 20220818
  5. XEOMIN [Suspect]
     Active Substance: INCOBOTULINUMTOXINA
     Dosage: 225 025
     Dates: start: 20230420, end: 20230420
  6. DANTRIUM [Concomitant]
     Active Substance: DANTROLENE SODIUM
     Indication: Muscle spasticity
     Dosage: 25 MG
     Route: 048
     Dates: start: 20230602, end: 20230710
  7. DANTRIUM [Concomitant]
     Active Substance: DANTROLENE SODIUM
     Dosage: 50 MG
     Route: 048
     Dates: start: 20230711
  8. LIORESAL [Concomitant]
     Active Substance: BACLOFEN
     Indication: Muscle spasticity
     Dates: end: 20220202

REACTIONS (3)
  - Femur fracture [Recovered/Resolved with Sequelae]
  - Muscle spasticity [Not Recovered/Not Resolved]
  - Off label use [Unknown]

NARRATIVE: CASE EVENT DATE: 20210916
